FAERS Safety Report 14771786 (Version 1)
Quarter: 2018Q2

REPORT INFORMATION
  Report Type: Spontaneous
  Country: US (occurrence: US)
  Receive Date: 20180417
  Receipt Date: 20180417
  Transmission Date: 20180711
  Serious: No
  Sender: FDA-Public Use
  Company Number: US-ALLERGAN-1759995US

PATIENT
  Sex: Female
  Weight: 49.89 kg

DRUGS (1)
  1. LATISSE [Suspect]
     Active Substance: BIMATOPROST
     Indication: PRODUCT USED FOR UNKNOWN INDICATION
     Dosage: UNK UNK, QHS
     Route: 061
     Dates: start: 201611

REACTIONS (3)
  - Madarosis [Unknown]
  - Drug ineffective [Unknown]
  - Eye discharge [Unknown]
